FAERS Safety Report 5155727-3 (Version None)
Quarter: 2006Q4

REPORT INFORMATION
  Report Type: 
  Country: None (occurrence: None)
  Receive Date: 20061114
  Receipt Date: 20061030
  Transmission Date: 20070319
  Serious: Yes (Other)
  Sender: FDA-Public Use
  Company Number: 012620

PATIENT
  Age: 66 Year
  Sex: Female

DRUGS (4)
  1. PRIALT [Suspect]
     Indication: PAIN
     Dosage: 0.09 UG, ONCE/HOUR, INTRATHECAL; SEE IMAGE
     Route: 037
     Dates: start: 20060201, end: 20060101
  2. PRIALT [Suspect]
     Indication: PAIN
     Dosage: 0.09 UG, ONCE/HOUR, INTRATHECAL; SEE IMAGE
     Route: 037
     Dates: start: 20060101
  3. DIURETICS [Concomitant]
  4. ANALGESICS [Concomitant]

REACTIONS (6)
  - CONFUSIONAL STATE [None]
  - DRUG INEFFECTIVE [None]
  - OEDEMA PERIPHERAL [None]
  - PAIN [None]
  - PULMONARY CONGESTION [None]
  - PULMONARY OEDEMA [None]
